FAERS Safety Report 16735671 (Version 2)
Quarter: 2019Q4

REPORT INFORMATION
  Report Type: Report from Study
  Country: FR (occurrence: FR)
  Receive Date: 20190823
  Receipt Date: 20191014
  Transmission Date: 20200122
  Serious: Yes (Death, Hospitalization)
  Sender: FDA-Public Use
  Company Number: FR-BAYER-2018-146813

PATIENT
  Age: 62 Year
  Sex: Male
  Weight: 80.5 kg

DRUGS (9)
  1. COPANLISIB. [Suspect]
     Active Substance: COPANLISIB
     Indication: SQUAMOUS CELL CARCINOMA OF HEAD AND NECK
     Dosage: 30 MG EVERY 1 WEEK
     Route: 042
     Dates: start: 20180726, end: 20180906
  2. MORPHINE [Concomitant]
     Active Substance: MORPHINE
     Indication: MUSCULOSKELETAL PAIN
     Dosage: 150 MG, QD
     Route: 042
     Dates: start: 20180803
  3. LAROXYL [Concomitant]
     Active Substance: AMITRIPTYLINE HYDROCHLORIDE
     Indication: PAIN
     Dosage: UNK
     Route: 048
     Dates: start: 201806
  4. MORPHINE [Concomitant]
     Active Substance: MORPHINE
     Indication: MUSCULOSKELETAL PAIN
     Dosage: 15 MG, Q4HR IF PAIN
     Route: 042
  5. CETUXIMAB. [Suspect]
     Active Substance: CETUXIMAB
     Indication: SQUAMOUS CELL CARCINOMA OF HEAD AND NECK
     Dosage: 482.5 MG EVERY 1 WEEK
     Route: 042
     Dates: start: 20180726, end: 20180906
  6. LEVOTHYROX [Concomitant]
     Active Substance: LEVOTHYROXINE
     Indication: HYPOTHYROIDISM
     Dosage: UNK
     Route: 048
     Dates: start: 20171103
  7. OXYCONTIN [Concomitant]
     Active Substance: OXYCODONE HYDROCHLORIDE
     Indication: PAIN
     Dosage: UNK
     Route: 048
     Dates: start: 2017
  8. OXYNORM [Concomitant]
     Active Substance: OXYCODONE HYDROCHLORIDE
     Indication: MUSCULOSKELETAL PAIN
     Dosage: UNK
     Route: 048
     Dates: start: 20180801
  9. INNOHEP [Concomitant]
     Active Substance: TINZAPARIN SODIUM
     Indication: PULMONARY EMBOLISM
     Dosage: UNK
     Route: 048
     Dates: start: 201804

REACTIONS (4)
  - Interstitial lung disease [Fatal]
  - Klebsiella test positive [Recovered/Resolved with Sequelae]
  - Musculoskeletal pain [Recovered/Resolved]
  - Device related infection [Recovered/Resolved with Sequelae]

NARRATIVE: CASE EVENT DATE: 20180801
